FAERS Safety Report 26068373 (Version 2)
Quarter: 2025Q4

REPORT INFORMATION
  Report Type: Spontaneous
  Country: EU (occurrence: EU)
  Receive Date: 20251120
  Receipt Date: 20251230
  Transmission Date: 20260118
  Serious: Yes (Hospitalization, Other)
  Sender: AUROBINDO
  Company Number: EU-AstrazenecaRSG-0506-D926QC00001(Prod)000002

PATIENT
  Sex: Female
  Weight: 65 kg

DRUGS (16)
  1. CARBOPLATIN [Suspect]
     Active Substance: CARBOPLATIN
     Indication: Non-small cell lung cancer
     Dosage: 1.5 UNKNOWN
     Dates: start: 20250201, end: 20250201
  2. EPIRUBICIN [Suspect]
     Active Substance: EPIRUBICIN
     Indication: Non-small cell lung cancer
     Dosage: UNK
     Route: 065
  3. PACLITAXEL [Suspect]
     Active Substance: PACLITAXEL
     Indication: Non-small cell lung cancer
     Dosage: 80 MILLIGRAM/SQ. METER, QD
     Dates: start: 20250131, end: 20250131
  4. PEMBROLIZUMAB [Suspect]
     Active Substance: PEMBROLIZUMAB
     Indication: Non-small cell lung cancer
     Dosage: 200 MILLIGRAM
     Route: 065
     Dates: start: 20250131, end: 20250131
  5. CYCLOPHOSPHAMIDE [Suspect]
     Active Substance: CYCLOPHOSPHAMIDE
     Indication: Non-small cell lung cancer
     Dosage: UNK
     Route: 065
  6. CLEMASTINE FUMARATE [Concomitant]
     Active Substance: CLEMASTINE FUMARATE
     Indication: Premedication
     Dosage: 2 MILLIGRAM
     Route: 065
  7. DECAPEPTYL (ACETATE) [Concomitant]
     Active Substance: TRIPTORELIN ACETATE
     Indication: Premature menopause
     Dosage: 3.75 MG 3.75 MILLIGRAM, QMONTH
  8. ZYRTEC [Concomitant]
     Active Substance: CETIRIZINE HYDROCHLORIDE
     Indication: Chemotherapy side effect prophylaxis
     Dosage: 10 MILLIGRAM
     Route: 061
  9. DEXAMETHASONE [Concomitant]
     Active Substance: DEXAMETHASONE
     Indication: Chemotherapy side effect prophylaxis
     Dosage: 20 MILLIGRAM
  10. ACETAMINOPHEN [Concomitant]
     Active Substance: ACETAMINOPHEN
     Indication: Catheter site pain
     Dosage: 1 G 1 GRAM, PRN
     Route: 061
     Dates: start: 20250123
  11. AKYNZEO (NETUPITANT\PALONOSETRON HYDROCHLORIDE) [Concomitant]
     Active Substance: NETUPITANT\PALONOSETRON HYDROCHLORIDE
     Indication: Chemotherapy side effect prophylaxis
     Dosage: 300 MILLIGRAM
  12. MEDROL [Concomitant]
     Active Substance: METHYLPREDNISOLONE
     Indication: Pancreatitis
     Dosage: 32 MG 32 MILLIGRAM, QD
     Route: 061
     Dates: start: 20250813, end: 20250817
  13. MEDROL [Concomitant]
     Active Substance: METHYLPREDNISOLONE
     Indication: Gastritis
     Dosage: 6 MG 6 MILLIGRAM, QD
     Route: 061
     Dates: start: 20250825, end: 20250831
  14. MEDROL [Concomitant]
     Active Substance: METHYLPREDNISOLONE
     Dosage: 14 MG 14 MILLIGRAM, QD
     Route: 061
     Dates: start: 20250818, end: 20250824
  15. MOMETASONE FUROATE [Concomitant]
     Active Substance: MOMETASONE FUROATE
     Indication: Erythema
     Dosage: UNK
     Route: 065
  16. SOLU-MEDROL [Concomitant]
     Active Substance: METHYLPREDNISOLONE SODIUM SUCCINATE
     Indication: Premedication
     Dosage: 5 MG 5 MILLIGRAM, QD
     Dates: start: 20250228

REACTIONS (1)
  - Pancreatitis [Recovered/Resolved]

NARRATIVE: CASE EVENT DATE: 20250807
